FAERS Safety Report 9452262 (Version 1)
Quarter: 2013Q3

REPORT INFORMATION
  Report Type: Spontaneous
  Country: US (occurrence: None)
  Receive Date: 20130808
  Receipt Date: 20130808
  Transmission Date: 20140515
  Serious: Yes (Life-Threatening, Other)
  Sender: FDA-Public Use
  Company Number: None

PATIENT
  Age: 32 Year
  Sex: Male
  Weight: 92.53 kg

DRUGS (1)
  1. ANTIHEMOPHILIC FACTOR [Suspect]
     Dosage: 12,000 IUS ONCE DAILY INTO A VEIN
     Dates: start: 20130803, end: 20130805

REACTIONS (3)
  - Hypersensitivity [None]
  - Feeling abnormal [None]
  - Product quality issue [None]
